FAERS Safety Report 10678777 (Version 2)
Quarter: 2015Q1

REPORT INFORMATION
  Report Type: Spontaneous
  Country: US (occurrence: US)
  Receive Date: 20141229
  Receipt Date: 20150205
  Transmission Date: 20150720
  Serious: Yes (Hospitalization)
  Sender: FDA-Public Use
  Company Number: US-JNJFOC-20141215590

PATIENT
  Age: 65 Year
  Sex: Male
  Weight: 106.14 kg

DRUGS (21)
  1. VITAMIN D2 [Concomitant]
     Active Substance: ERGOCALCIFEROL
     Route: 065
  2. XARELTO [Suspect]
     Active Substance: RIVAROXABAN
     Indication: PULMONARY EMBOLISM
     Route: 048
     Dates: end: 20141204
  3. XARELTO [Suspect]
     Active Substance: RIVAROXABAN
     Indication: DEEP VEIN THROMBOSIS
     Route: 048
     Dates: end: 20141204
  4. PROTONIX [Concomitant]
     Active Substance: PANTOPRAZOLE SODIUM
     Indication: GASTROINTESTINAL DISORDER THERAPY
     Route: 042
  5. MORPHINE [Concomitant]
     Active Substance: MORPHINE
     Route: 042
  6. LISINOPRIL. [Concomitant]
     Active Substance: LISINOPRIL
     Route: 065
  7. METFORMIN [Concomitant]
     Active Substance: METFORMIN HYDROCHLORIDE
     Route: 065
  8. ALLOPURINOL. [Concomitant]
     Active Substance: ALLOPURINOL
     Route: 065
  9. FLEXERIL [Concomitant]
     Active Substance: CYCLOBENZAPRINE HYDROCHLORIDE
     Route: 065
  10. FLOMAX [Concomitant]
     Active Substance: TAMSULOSIN HYDROCHLORIDE
     Route: 065
  11. IMDUR [Concomitant]
     Active Substance: ISOSORBIDE MONONITRATE
     Route: 065
  12. ISOVUE 370 [Concomitant]
     Active Substance: IOPAMIDOL
     Route: 042
  13. OXYIR [Concomitant]
     Active Substance: OXYCODONE HYDROCHLORIDE
     Route: 065
  14. SODIUM CHLORIDE. [Concomitant]
     Active Substance: SODIUM CHLORIDE
     Dosage: AS DIRECTED
     Route: 042
  15. ZOFRAN [Concomitant]
     Active Substance: ONDANSETRON HYDROCHLORIDE
     Route: 042
  16. K DUR (POTASSIUM CHLORIDE) [Concomitant]
     Route: 048
  17. HYDROCHLOROTHIAZIDE. [Concomitant]
     Active Substance: HYDROCHLOROTHIAZIDE
     Route: 065
  18. ZOCOR [Concomitant]
     Active Substance: SIMVASTATIN
     Route: 065
  19. COREG [Concomitant]
     Active Substance: CARVEDILOL
     Route: 065
  20. AMARYL [Concomitant]
     Active Substance: GLIMEPIRIDE
     Route: 065
  21. NOVOLOG [Concomitant]
     Active Substance: INSULIN ASPART
     Indication: HYPERGLYCAEMIA
     Route: 065

REACTIONS (4)
  - Treatment failure [Unknown]
  - Deep vein thrombosis [Recovering/Resolving]
  - Cellulitis [Recovering/Resolving]
  - Atrial fibrillation [Unknown]

NARRATIVE: CASE EVENT DATE: 20141204
